FAERS Safety Report 8510453 (Version 2)
Quarter: 2012Q4

REPORT INFORMATION
  Report Type: 
  Country: US (occurrence: US)
  Receive Date: 20120413
  Receipt Date: 20121010
  Transmission Date: 20130627
  Serious: Yes (Hospitalization)
  Sender: FDA-Public Use
  Company Number: US-FRI-1000029449

PATIENT
  Age: 26 None
  Sex: Female
  Weight: 90 kg

DRUGS (8)
  1. VIIBRYD [Suspect]
     Indication: DEPRESSION
     Dosage: 10  mg
     Route: 048
     Dates: start: 20120130
  2. VIIBRYD [Suspect]
     Indication: DEPRESSION
  3. VIIBRYD [Suspect]
     Indication: DEPRESSION
     Dosage: 20 mg
     Route: 048
     Dates: end: 20120328
  4. VIIBRYD [Suspect]
     Indication: DEPRESSION
  5. WELLBUTRIN [Concomitant]
     Indication: DEPRESSION
  6. EFFEXOR XR [Concomitant]
     Dosage: 37.5 mg
  7. HYDROCHLOROTHIAZIDE [Concomitant]
     Dosage: 25 mg
  8. LISINOPRIL [Concomitant]
     Dosage: 10 mg

REACTIONS (13)
  - Suicidal ideation [Unknown]
  - Mental disorder [Unknown]
  - Aggression [Unknown]
  - Apathy [Unknown]
  - Fatigue [Unknown]
  - Disturbance in attention [Unknown]
  - Malaise [Unknown]
  - Anxiety [Unknown]
  - Affect lability [Unknown]
  - Insomnia [Unknown]
  - Anhedonia [Unknown]
  - Restlessness [Unknown]
  - Agitation [Unknown]
